FAERS Safety Report 18658278 (Version 1)
Quarter: 2020Q4

REPORT INFORMATION
  Report Type: Report from Study
  Country: GB (occurrence: GB)
  Receive Date: 20201223
  Receipt Date: 20201223
  Transmission Date: 20210114
  Serious: Yes (Other)
  Sender: FDA-Public Use
  Company Number: GB-MYLANLABS-2020M1104327

PATIENT
  Sex: Male

DRUGS (1)
  1. BRABIO 40 MG/ML SOLUTION FOR INJECTION, PRE-FILLED-SYRINGE [Suspect]
     Active Substance: GLATIRAMER ACETATE
     Indication: MULTIPLE SCLEROSIS
     Dosage: 40 MILLIGRAM, 3XW
     Route: 058
     Dates: start: 2019

REACTIONS (1)
  - Secondary progressive multiple sclerosis [Unknown]
